FAERS Safety Report 4764398-7 (Version None)
Quarter: 2005Q3

REPORT INFORMATION
  Report Type: 
  Country: None (occurrence: None)
  Receive Date: 20050906
  Receipt Date: 20050822
  Transmission Date: 20060218
  Serious: Yes (Hospitalization)
  Sender: FDA-Public Use
  Company Number: US015351

PATIENT
  Age: 60 Year
  Sex: Female

DRUGS (10)
  1. GABITRIL [Suspect]
     Indication: NEURALGIA
     Dosage: 4 MG QHS ORAL
     Route: 048
     Dates: start: 20040822, end: 20040824
  2. GABITRIL [Suspect]
     Indication: NEURALGIA
     Dosage: 4 MG QAM/PM ORAL
     Route: 048
     Dates: start: 20040829, end: 20040904
  3. GABITRIL [Suspect]
     Indication: NEURALGIA
     Dosage: 4 MG QAM/PM ORAL
     Route: 048
     Dates: start: 20040905, end: 20040906
  4. METHADONE HCL [Concomitant]
  5. ELAVIL [Concomitant]
  6. HUMULIN 70/30 [Concomitant]
  7. GLUCOPHAGE [Concomitant]
  8. PAXIL [Concomitant]
  9. PREVACID [Concomitant]
  10. IMITREX [Concomitant]

REACTIONS (4)
  - ABNORMAL BEHAVIOUR [None]
  - ARTHROPATHY [None]
  - DYSSTASIA [None]
  - INCOHERENT [None]
